FAERS Safety Report 19412600 (Version 12)
Quarter: 2024Q1

REPORT INFORMATION
  Report Type: Other
  Country: CA (occurrence: None)
  Receive Date: 20210614
  Receipt Date: 20240314
  Transmission Date: 20240409
  Serious: Yes (Life-Threatening, Hospitalization)
  Sender: FDA-Public Use
  Company Number: CA-ROCHE-2845683

PATIENT
  Age: 60 Year
  Sex: Male
  Weight: 81.72 kg

DRUGS (10)
  1. OCREVUS [Suspect]
     Active Substance: OCRELIZUMAB
     Indication: Relapsing-remitting multiple sclerosis
     Dosage: 300 MG AT DAY 0 AND 14, THEN 600 MG EVERY 6 MONTH
     Route: 042
     Dates: start: 20201126
  2. MACROBID [Concomitant]
     Active Substance: NITROFURANTOIN\NITROFURANTOIN MONOHYDRATE
  3. LYRICA [Concomitant]
     Active Substance: PREGABALIN
  4. CLONAZEPAM [Concomitant]
     Active Substance: CLONAZEPAM
  5. TAMSULOSIN [Concomitant]
     Active Substance: TAMSULOSIN
  6. BUPROPION [Concomitant]
     Active Substance: BUPROPION
  7. VENLAFAXINE [Concomitant]
     Active Substance: VENLAFAXINE HYDROCHLORIDE
  8. TYLENOL [Concomitant]
     Active Substance: ACETAMINOPHEN
  9. ATIVAN [Concomitant]
     Active Substance: LORAZEPAM
  10. DALFAMPRIDINE [Concomitant]
     Active Substance: DALFAMPRIDINE

REACTIONS (13)
  - Urosepsis [Unknown]
  - Urinary tract infection [Unknown]
  - Fatigue [Not Recovered/Not Resolved]
  - Muscular weakness [Not Recovered/Not Resolved]
  - Dysaesthesia [Not Recovered/Not Resolved]
  - Fine motor skill dysfunction [Not Recovered/Not Resolved]
  - Nocturia [Not Recovered/Not Resolved]
  - Visual impairment [Not Recovered/Not Resolved]
  - Memory impairment [Not Recovered/Not Resolved]
  - Decreased vibratory sense [Not Recovered/Not Resolved]
  - Joint hyperextension [Not Recovered/Not Resolved]
  - COVID-19 [Recovered/Resolved]
  - Anxiety [Recovered/Resolved]

NARRATIVE: CASE EVENT DATE: 20230301
